FAERS Safety Report 15377189 (Version 1)
Quarter: 2018Q3

REPORT INFORMATION
  Report Type: Report from Study
  Country: US (occurrence: US)
  Receive Date: 20180913
  Receipt Date: 20180913
  Transmission Date: 20181010
  Serious: No
  Sender: FDA-Public Use
  Company Number: PHEH2018US038206

PATIENT
  Age: 64 Year
  Sex: Female

DRUGS (1)
  1. COSENTYX [Suspect]
     Active Substance: SECUKINUMAB
     Indication: PSORIASIS
     Dosage: 300 MG, QOD
     Route: 058
     Dates: start: 20180802

REACTIONS (3)
  - Inappropriate schedule of drug administration [Unknown]
  - Seasonal allergy [Unknown]
  - Overdose [Unknown]

NARRATIVE: CASE EVENT DATE: 20180802
